FAERS Safety Report 17339988 (Version 1)
Quarter: 2020Q1

REPORT INFORMATION
  Report Type: Spontaneous
  Country: JP (occurrence: JP)
  Receive Date: 20200129
  Receipt Date: 20200129
  Transmission Date: 20200409
  Serious: Yes (Death, Life-Threatening)
  Sender: FDA-Public Use
  Company Number: JP-PFIZER INC-2020033146

PATIENT
  Age: 84 Year
  Sex: Female

DRUGS (17)
  1. CEFMETAZOLE [Suspect]
     Active Substance: CEFMETAZOLE
     Indication: KLEBSIELLA INFECTION
     Dosage: 2 G, 2X/DAY (2 G EVERY 12 H)
  2. PREDNISOLONE. [Concomitant]
     Active Substance: PREDNISOLONE
     Dosage: 80 MG, DAILY (INCREASED)
  3. SULFAMETHOXAZOLE AND TRIMETHOPRIM [Suspect]
     Active Substance: SULFAMETHOXAZOLE\TRIMETHOPRIM
     Indication: KLEBSIELLA INFECTION
     Dosage: 7.5 MG/KG, DAILY (7.5 MG/KG/DAY)
  4. CEFMETAZOLE [Suspect]
     Active Substance: CEFMETAZOLE
     Indication: ESCHERICHIA INFECTION
  5. CEFMETAZOLE [Suspect]
     Active Substance: CEFMETAZOLE
     Indication: CORYNEBACTERIUM BACTERAEMIA
  6. PREDNISOLONE. [Concomitant]
     Active Substance: PREDNISOLONE
     Indication: HAEMOLYTIC ANAEMIA
     Dosage: UNK, DAILY (TITRATED BETWEEN 10 MG AND 80 MG)
  7. ACICLOVIR [Suspect]
     Active Substance: ACYCLOVIR
     Indication: PNEUMOCYSTIS JIROVECII PNEUMONIA
     Dosage: 500 MG, 2X/DAY
     Route: 042
  8. AMPICILLIN SODIUM/SULBACTAM SODIUM [Suspect]
     Active Substance: AMPICILLIN SODIUM\SULBACTAM SODIUM
     Indication: PNEUMONIA ASPIRATION
     Dosage: 3 G, 2X/DAY (3 G EVERY 12 H)
  9. SULFAMETHOXAZOLE AND TRIMETHOPRIM [Suspect]
     Active Substance: SULFAMETHOXAZOLE\TRIMETHOPRIM
     Indication: ESCHERICHIA INFECTION
  10. VALACICLOVIR [Suspect]
     Active Substance: VALACYCLOVIR HYDROCHLORIDE
     Indication: HERPES ZOSTER
     Dosage: 1 G, DAILY
  11. VANCOMYCIN [Suspect]
     Active Substance: VANCOMYCIN
     Indication: KLEBSIELLA INFECTION
     Dosage: UNK (500MG TO 1 G AT A TIME)
  12. PREDNISOLONE. [Concomitant]
     Active Substance: PREDNISOLONE
     Indication: ANTIFUNGAL PROPHYLAXIS
     Dosage: 40 MG, DAILY
  13. SULFAMETHOXAZOLE AND TRIMETHOPRIM [Suspect]
     Active Substance: SULFAMETHOXAZOLE\TRIMETHOPRIM
     Indication: CORYNEBACTERIUM BACTERAEMIA
  14. VANCOMYCIN [Suspect]
     Active Substance: VANCOMYCIN
     Indication: CORYNEBACTERIUM BACTERAEMIA
  15. ACICLOVIR [Suspect]
     Active Substance: ACYCLOVIR
     Indication: VARICELLA ZOSTER PNEUMONIA
  16. VANCOMYCIN [Suspect]
     Active Substance: VANCOMYCIN
     Indication: ESCHERICHIA INFECTION
  17. PREDNISOLONE. [Concomitant]
     Active Substance: PREDNISOLONE
     Dosage: 5 MG, DAILY

REACTIONS (2)
  - Coma [Fatal]
  - Drug ineffective [Fatal]
